FAERS Safety Report 18239566 (Version 5)
Quarter: 2021Q2

REPORT INFORMATION
  Report Type: Other
  Country: US (occurrence: US)
  Receive Date: 20200907
  Receipt Date: 20210428
  Transmission Date: 20210717
  Serious: Yes (Other)
  Sender: FDA-Public Use
  Company Number: US-ROCHE-2669888

PATIENT
  Sex: Female

DRUGS (24)
  1. KAY CIEL [Concomitant]
     Active Substance: POTASSIUM CHLORIDE
     Dosage: TAKE BY MOUTH DAILY
     Route: 048
  2. DELTASONE [Concomitant]
     Active Substance: PREDNISONE
     Dosage: 30 MG BY MOUTH DAILY
     Route: 048
  3. RITUXIMAB. [Suspect]
     Active Substance: RITUXIMAB
     Indication: PARANEOPLASTIC PEMPHIGUS
  4. LINZESS [Concomitant]
     Active Substance: LINACLOTIDE
     Dosage: TAKE 290 MCG BY MOUTH DAILY
     Route: 048
  5. ZOFRAN [Concomitant]
     Active Substance: ONDANSETRON HYDROCHLORIDE
     Indication: VOMITING
  6. RITUXIMAB. [Suspect]
     Active Substance: RITUXIMAB
     Indication: PEMPHIGOID
  7. CELLCEPT [Suspect]
     Active Substance: MYCOPHENOLATE MOFETIL\MYCOPHENOLATE MOFETIL HYDROCHLORIDE
  8. SYNTHROID [Concomitant]
     Active Substance: LEVOTHYROXINE SODIUM
     Dosage: 75 MCG TAB BY MOUTH DAILY
     Route: 048
  9. ZOFRAN [Concomitant]
     Active Substance: ONDANSETRON HYDROCHLORIDE
     Indication: NAUSEA
     Dosage: 4 MG TAB BY MOUTH EVERY 8 (EIGHT)] HOURS AS NEEDED
     Route: 048
  10. POLYETHYLENE GLYCOL [Concomitant]
     Active Substance: POLYETHYLENE GLYCOLS
     Dosage: TAKE 17 GM BY MOUTH DAILY. 1 CAPFUL WITH WATER
     Route: 048
  11. FORTEO [Concomitant]
     Active Substance: TERIPARATIDE
     Dosage: INJECT UNDER THE SKIN DAILY
  12. CELLCEPT [Suspect]
     Active Substance: MYCOPHENOLATE MOFETIL\MYCOPHENOLATE MOFETIL HYDROCHLORIDE
     Route: 048
  13. LIDOCAINE. [Concomitant]
     Active Substance: LIDOCAINE
  14. KAY CIEL [Concomitant]
     Active Substance: POTASSIUM CHLORIDE
     Dosage: TAKE BY MOUTH BY MOUTH 2 (TWO) TIMES A DAY
     Route: 048
  15. RITUXIMAB. [Suspect]
     Active Substance: RITUXIMAB
     Indication: CHRONIC LYMPHOCYTIC LEUKAEMIA
     Route: 065
  16. HYDROCHLOROTHIAZIDE. [Concomitant]
     Active Substance: HYDROCHLOROTHIAZIDE
     Route: 048
  17. IBUPROFEN. [Concomitant]
     Active Substance: IBUPROFEN
     Indication: PAIN
     Route: 048
  18. COMPAZINE [Concomitant]
     Active Substance: PROCHLORPERAZINE MALEATE
     Indication: NAUSEA
     Dosage: 10 MG TAB BY MOUTH EVERY 6 (SIX) HOURS AS NEEDED
     Route: 048
  19. CELLCEPT [Suspect]
     Active Substance: MYCOPHENOLATE MOFETIL\MYCOPHENOLATE MOFETIL HYDROCHLORIDE
     Indication: PEMPHIGUS
     Route: 048
  20. CELLCEPT [Suspect]
     Active Substance: MYCOPHENOLATE MOFETIL\MYCOPHENOLATE MOFETIL HYDROCHLORIDE
     Indication: PEMPHIGUS
     Dosage: 200 MG/ML?INCREASING TO 100 MG AS TOLERATED?500 MG BID INCREASING TO 100 MG AS TOLERATED
     Route: 048
  21. VITAMIN D3 [Concomitant]
     Active Substance: CHOLECALCIFEROL
     Dosage: 1000 MG?400 UNIT/30 ML TAKE BY MOUTH 2 (TWO) TIMES A DAY
     Route: 048
  22. ROXICODONE [Concomitant]
     Active Substance: OXYCODONE HYDROCHLORIDE
     Indication: PAIN
     Dosage: SOL 5 MG/ 5ML BY MOUTH VERY 4 (FOUR) HOURS AS NEEDED
     Route: 048
  23. PROTONIX [Concomitant]
     Active Substance: PANTOPRAZOLE SODIUM
     Dosage: TAKE 40 MG BY MOUTH EVERY MORNING
     Route: 048
  24. CYCLOPHOSPHAMIDE. [Concomitant]
     Active Substance: CYCLOPHOSPHAMIDE

REACTIONS (11)
  - Immune system disorder [Unknown]
  - Oral infection [Unknown]
  - Dysphagia [Unknown]
  - Peripheral swelling [Unknown]
  - Off label use [Unknown]
  - Therapeutic response decreased [Unknown]
  - Paraesthesia [Unknown]
  - Back pain [Unknown]
  - Musculoskeletal stiffness [Unknown]
  - Product prescribing error [Unknown]
  - Oral pain [Unknown]
